FAERS Safety Report 20439315 (Version 1)
Quarter: 2022Q1

REPORT INFORMATION
  Report Type: Spontaneous
  Country: US (occurrence: US)
  Receive Date: 20220207
  Receipt Date: 20220207
  Transmission Date: 20220424
  Serious: No
  Sender: FDA-Public Use
  Company Number: US-WEST THERAPEUTIC DEVELOPMENT-2021WTD00017

PATIENT
  Sex: Male

DRUGS (4)
  1. SUBSYS [Suspect]
     Active Substance: FENTANYL
     Indication: Breakthrough pain
     Dosage: 1600 ?G, 4X/DAY
     Route: 060
     Dates: end: 20210901
  2. CANNABIDIOL [Concomitant]
     Active Substance: CANNABIDIOL
  3. MORPHINE [Concomitant]
     Active Substance: MORPHINE
     Dosage: UNK
  4. MORPHINE [Concomitant]
     Active Substance: MORPHINE
     Dosage: CUT DOWN TO 2 TABLETS PER DAY
     Dates: end: 20210921

REACTIONS (11)
  - Mental disorder [Not Recovered/Not Resolved]
  - Mental impairment [Not Recovered/Not Resolved]
  - Pain [Not Recovered/Not Resolved]
  - Stress [Not Recovered/Not Resolved]
  - Malaise [Not Recovered/Not Resolved]
  - Drug dependence [Unknown]
  - Product dose omission issue [Recovered/Resolved]
  - Drug delivery system issue [Recovered/Resolved]
  - Intentional misuse of drug delivery system [Recovered/Resolved]
  - Therapy interrupted [Not Recovered/Not Resolved]
  - Product supply issue [Not Recovered/Not Resolved]

NARRATIVE: CASE EVENT DATE: 20210901
